FAERS Safety Report 6163749-9 (Version None)
Quarter: 2009Q2

REPORT INFORMATION
  Report Type: 
  Country: None (occurrence: None)
  Receive Date: 20090420
  Receipt Date: 20090414
  Transmission Date: 20091009
  Serious: Yes (Other)
  Sender: FDA-Public Use
  Company Number: CHPA2009US09461

PATIENT
  Age: 25 Year
  Sex: Female
  Weight: 61.2 kg

DRUGS (3)
  1. NICOTINE [Suspect]
     Indication: SMOKING CESSATION THERAPY
     Dosage: 7 MG, QD, TRANSDERMAL
     Route: 062
     Dates: start: 20090401
  2. SPRINTEC (ETHINYLESTRADIOL, NORGESTIMATE) [Concomitant]
  3. PROAIR (FLUTICASONE PROPIONATE) (FLUTICASONE PROPIONATE) [Concomitant]

REACTIONS (3)
  - ANXIETY [None]
  - BURNING SENSATION [None]
  - WEIGHT DECREASED [None]
